FAERS Safety Report 19128885 (Version 2)
Quarter: 2022Q1

REPORT INFORMATION
  Report Type: Spontaneous
  Country: US (occurrence: US)
  Receive Date: 20210413
  Receipt Date: 20220322
  Transmission Date: 20220423
  Serious: No
  Sender: FDA-Public Use
  Company Number: US-ALLERGAN-2108379US

PATIENT
  Age: 27 Year
  Sex: Male

DRUGS (1)
  1. LATISSE [Suspect]
     Active Substance: BIMATOPROST
     Indication: Growth of eyelashes
     Dosage: UNK
     Route: 061
     Dates: start: 202008, end: 202010

REACTIONS (3)
  - Incorrect dose administered [Unknown]
  - Erythema of eyelid [Not Recovered/Not Resolved]
  - Skin discolouration [Not Recovered/Not Resolved]
